FAERS Safety Report 8496687-7 (Version None)
Quarter: 2012Q3

REPORT INFORMATION
  Report Type: 
  Country: None (occurrence: None)
  Receive Date: 20120709
  Receipt Date: 20120628
  Transmission Date: 20120928
  Serious: Yes (Other)
  Sender: FDA-Public Use
  Company Number: JP-VERTEX PHARMACEUTICALS INC.-AE-2012-006095

PATIENT
  Age: 68 Year
  Sex: Male

DRUGS (8)
  1. RIBAVIRIN [Concomitant]
     Route: 048
     Dates: start: 20120312
  2. NEO-MINOPHAGEN C [Concomitant]
     Dates: start: 20110531, end: 20120525
  3. RIBAVIRIN [Concomitant]
     Route: 048
     Dates: start: 20120326
  4. RIBAVIRIN [Concomitant]
     Indication: HEPATITIS C
     Route: 048
     Dates: start: 20120302, end: 20120311
  5. URSO 250 [Concomitant]
     Route: 048
     Dates: start: 20000101
  6. RIBAVIRIN [Concomitant]
     Route: 048
     Dates: start: 20120305, end: 20120325
  7. PEGINTERFERON ALFA-2B [Concomitant]
     Indication: HEPATITIS C
     Route: 058
     Dates: start: 20120302
  8. TELAVIC (TELAPREVIR) [Suspect]
     Indication: HEPATITIS C
     Route: 048
     Dates: start: 20120305, end: 20120528

REACTIONS (2)
  - BLOOD CREATININE INCREASED [None]
  - HYPERURICAEMIA [None]
